FAERS Safety Report 16955938 (Version 3)
Quarter: 2020Q1

REPORT INFORMATION
  Report Type: Spontaneous
  Country: JP (occurrence: JP)
  Receive Date: 20191024
  Receipt Date: 20200217
  Transmission Date: 20200409
  Serious: Yes (Hospitalization, Other)
  Sender: FDA-Public Use
  Company Number: NVSJ2019JP000767

PATIENT
  Age: 75 Year
  Sex: Female

DRUGS (2)
  1. MEKINIST [Suspect]
     Active Substance: TRAMETINIB DIMETHYL SULFOXIDE
     Indication: LUNG ADENOCARCINOMA STAGE IV
     Dosage: UNK
     Route: 048
  2. TAFINLAR [Suspect]
     Active Substance: DABRAFENIB MESYLATE
     Indication: LUNG ADENOCARCINOMA STAGE IV
     Dosage: UNK
     Route: 048

REACTIONS (15)
  - Rhabdomyolysis [Recovered/Resolved]
  - Blood creatine phosphokinase increased [Recovered/Resolved]
  - Disseminated intravascular coagulation [Recovered/Resolved]
  - Ejection fraction decreased [Unknown]
  - Asthenia [Unknown]
  - Diabetes mellitus [Unknown]
  - Pleural effusion [Unknown]
  - Coagulation time prolonged [Unknown]
  - Infection [Unknown]
  - Decreased appetite [Unknown]
  - Platelet count decreased [Recovered/Resolved]
  - C-reactive protein increased [Recovered/Resolved]
  - Renal impairment [Unknown]
  - Pyrexia [Unknown]
  - Malaise [Unknown]
